FAERS Safety Report 7654178-7 (Version None)
Quarter: 2011Q3

REPORT INFORMATION
  Report Type: 
  Country: None (occurrence: None)
  Receive Date: 20110803
  Receipt Date: 20110803
  Transmission Date: 20111222
  Serious: Yes (Hospitalization, Disabling, Other)
  Sender: FDA-Public Use
  Company Number: PHHO2004US07882

PATIENT
  Sex: Female
  Weight: 75 kg

DRUGS (15)
  1. LOVASTATIN [Concomitant]
     Indication: BLOOD CHOLESTEROL INCREASED
  2. PYRIDOSTIGMINE BROMIDE [Concomitant]
  3. TRAMADOL HCL [Concomitant]
  4. TRIAMTERENE [Concomitant]
  5. ASPIRIN [Concomitant]
  6. PRAVASTATIN [Concomitant]
  7. TRILEPTAL [Suspect]
     Indication: NEUROPATHY PERIPHERAL
     Dosage: 1200MG
     Dates: start: 20040211, end: 20040521
  8. NAPROXEN (ALEVE) [Concomitant]
  9. ULTRAM [Concomitant]
  10. LEVOXYL [Concomitant]
  11. BACTRIM [Concomitant]
  12. ZOCOR [Concomitant]
  13. NEURONTIN [Concomitant]
  14. BACLOFEN [Concomitant]
  15. SULFAMETHOXAZOLE [Concomitant]

REACTIONS (15)
  - HEPATITIS [None]
  - PYREXIA [None]
  - SOMNOLENCE [None]
  - NAUSEA [None]
  - LOSS OF CONSCIOUSNESS [None]
  - RENAL FAILURE ACUTE [None]
  - LETHARGY [None]
  - GAIT DISTURBANCE [None]
  - ATAXIA [None]
  - FATIGUE [None]
  - HEADACHE [None]
  - HEPATIC ENZYME INCREASED [None]
  - VOMITING [None]
  - MALAISE [None]
  - DYSPHAGIA [None]
